FAERS Safety Report 4845283-9 (Version None)
Quarter: 2005Q4

REPORT INFORMATION
  Report Type: 
  Country: None (occurrence: None)
  Receive Date: 20051129
  Receipt Date: 20051117
  Transmission Date: 20060501
  Serious: Yes (Life-Threatening, Other)
  Sender: FDA-Public Use
  Company Number: 219295

PATIENT
  Age: 50 Year
  Sex: Female
  Weight: 44.4 kg

DRUGS (7)
  1. XOLAIR [Suspect]
     Indication: ASTHMA
     Dosage: 300 MG, SINGLE
     Dates: start: 20051021, end: 20051021
  2. SINGULAIR [Concomitant]
  3. SEREVENT [Concomitant]
  4. PULMICORT [Concomitant]
  5. XOPENEX [Concomitant]
  6. FLONASE [Concomitant]
  7. RANITIDINE [Concomitant]

REACTIONS (5)
  - ANAPHYLACTIC REACTION [None]
  - ANGIONEUROTIC OEDEMA [None]
  - DRUG INEFFECTIVE [None]
  - IMPAIRED WORK ABILITY [None]
  - INSOMNIA [None]
